FAERS Safety Report 6827250-9 (Version None)
Quarter: 2010Q3

REPORT INFORMATION
  Report Type: 
  Country: None (occurrence: None)
  Receive Date: 20100709
  Receipt Date: 20100630
  Transmission Date: 20110219
  Serious: Yes (Other)
  Sender: FDA-Public Use
  Company Number: BR-PFIZER INC-2010069331

PATIENT
  Age: 68 Year
  Sex: Female
  Weight: 74 kg

DRUGS (8)
  1. CHAMPIX [Suspect]
     Indication: SMOKING CESSATION THERAPY
     Dosage: 0.5 MG, 1X/DAY
     Route: 048
     Dates: start: 20100531, end: 20100601
  2. BUDESONIDE/FORMOTEROL FUMARATE [Concomitant]
     Indication: BRONCHITIS
     Dosage: UNK
  3. AZITROMICINA [Concomitant]
     Dosage: UNK
  4. SPIRIVA [Concomitant]
     Indication: BRONCHITIS
     Dosage: UNK
  5. ACETYLCYSTEINE [Concomitant]
     Indication: BRONCHITIS
     Dosage: UNK
  6. BEROTEC [Concomitant]
     Indication: BRONCHITIS
     Dosage: UNK
  7. ATROVENT [Concomitant]
     Indication: BRONCHITIS
     Dosage: UNK
  8. OXYGEN [Concomitant]
     Dosage: UNK

REACTIONS (1)
  - HEART RATE INCREASED [None]
